FAERS Safety Report 10838485 (Version 1)
Quarter: 2015Q1

REPORT INFORMATION
  Report Type: Spontaneous
  Country: US (occurrence: None)
  Receive Date: 20150218
  Receipt Date: 20150218
  Transmission Date: 20150721
  Serious: Yes (Other)
  Sender: FDA-Public Use
  Company Number: US-MDCO-15-00068

PATIENT
  Sex: Male

DRUGS (1)
  1. ANGIOMAX [Suspect]
     Active Substance: BIVALIRUDIN
     Indication: PERCUTANEOUS CORONARY INTERVENTION
     Dates: start: 201411

REACTIONS (4)
  - Coronary artery thrombosis [None]
  - Coagulation time shortened [None]
  - Coronary artery restenosis [None]
  - Ejection fraction decreased [None]

NARRATIVE: CASE EVENT DATE: 201411
